FAERS Safety Report 4277301-3 (Version None)
Quarter: 2004Q1

REPORT INFORMATION
  Report Type: 
  Country: None (occurrence: None)
  Receive Date: 20040120
  Receipt Date: 20040108
  Transmission Date: 20041129
  Serious: Yes (Hospitalization)
  Sender: FDA-Public Use
  Company Number: 2003121646

PATIENT
  Age: 81 Year
  Sex: Female
  Weight: 36.4 kg

DRUGS (3)
  1. NORVASC [Suspect]
     Indication: HYPERTENSION
     Dosage: 2.5 MG (DAILY) ORAL
     Route: 048
     Dates: end: 20031204
  2. PRAVASTATIN SODIUM [Suspect]
     Indication: HYPERLIPIDAEMIA
     Dosage: 10 MG (DAILY) ORAL
     Route: 048
     Dates: start: 19960927
  3. MECOBALAMIN (MECOBALAMIN) [Suspect]
     Indication: NEUROPATHY PERIPHERAL
     Dosage: 250 MCG (DAILY) ORAL
     Route: 048
     Dates: start: 19960927

REACTIONS (14)
  - ASTHMA [None]
  - BRONCHIECTASIS [None]
  - BRONCHITIS ACUTE [None]
  - COUGH [None]
  - DRUG INEFFECTIVE [None]
  - DYSPNOEA [None]
  - HYPERTENSION [None]
  - HYPOACUSIS [None]
  - INSOMNIA [None]
  - NASOPHARYNGITIS [None]
  - NEISSERIA INFECTION [None]
  - PRODUCTIVE COUGH [None]
  - SENSATION OF FOREIGN BODY [None]
  - STREPTOCOCCAL INFECTION [None]
